FAERS Safety Report 14564963 (Version 1)
Quarter: 2018Q1

REPORT INFORMATION
  Report Type: Spontaneous
  Country: US (occurrence: US)
  Receive Date: 20180223
  Receipt Date: 20180223
  Transmission Date: 20180509
  Serious: Yes (Other)
  Sender: FDA-Public Use
  Company Number: US-AMGEN-USASP2018022234

PATIENT
  Age: 92 Year
  Sex: Male

DRUGS (3)
  1. CALCIUM [Concomitant]
     Active Substance: CALCIUM
     Dosage: 600 MG, UNK
  2. VITAMIN D [Concomitant]
     Active Substance: CHOLECALCIFEROL
     Dosage: 800 IU, UNK
  3. PROLIA [Suspect]
     Active Substance: DENOSUMAB
     Indication: STRESS FRACTURE
     Dosage: UNK
     Route: 065
     Dates: start: 2016

REACTIONS (4)
  - Off label use [Unknown]
  - Device loosening [Unknown]
  - Sinusitis [Unknown]
  - Tooth disorder [Unknown]

NARRATIVE: CASE EVENT DATE: 2018
